FAERS Safety Report 6595324-6 (Version None)
Quarter: 2010Q1

REPORT INFORMATION
  Report Type: 
  Country: None (occurrence: None)
  Receive Date: 20100219
  Receipt Date: 20100219
  Transmission Date: 20100710
  Serious: Yes (Disabling)
  Sender: FDA-Public Use
  Company Number: None

PATIENT
  Age: 80 Year
  Sex: Female
  Weight: 63.05 kg

DRUGS (3)
  1. LABETALOL HCL [Suspect]
     Indication: BLOOD PRESSURE INCREASED
     Dosage: 20MG EVERY 1 HOUR PRN IV BOLUS
     Route: 040
     Dates: start: 20100216, end: 20100218
  2. METOPROLOL [Concomitant]
  3. DIOVAN [Concomitant]

REACTIONS (2)
  - BLOOD PRESSURE SYSTOLIC DECREASED [None]
  - HEART RATE DECREASED [None]
